FAERS Safety Report 9596381 (Version 2)
Quarter: 2013Q4

REPORT INFORMATION
  Report Type: Spontaneous
  Country: BR (occurrence: BR)
  Receive Date: 20131004
  Receipt Date: 20131004
  Transmission Date: 20140711
  Serious: Yes (Congenital Anomaly)
  Sender: FDA-Public Use
  Company Number: BR-009507513-1308BRA005220

PATIENT
  Sex: Female
  Weight: 1.59 kg

DRUGS (2)
  1. NUVARING [Suspect]
     Dosage: UNK
     Route: 064
     Dates: start: 2006
  2. NUVARING [Suspect]
     Dosage: UNK
     Route: 067

REACTIONS (6)
  - Congenital diaphragmatic anomaly [Recovered/Resolved]
  - Diaphragmatic operation [Unknown]
  - Low birth weight baby [Recovered/Resolved]
  - Hypermetabolism [Recovered/Resolved]
  - Pneumonia [Recovered/Resolved]
  - Bronchiolitis [Recovered/Resolved]
